FAERS Safety Report 4310326-8 (Version None)
Quarter: 2004Q1

REPORT INFORMATION
  Report Type: 
  Country: None (occurrence: None)
  Receive Date: 20040302
  Receipt Date: 20040302
  Transmission Date: 20041129
  Serious: Yes (Other)
  Sender: FDA-Public Use
  Company Number: None

PATIENT
  Age: 54 Year
  Sex: Female
  Weight: 61.2356 kg

DRUGS (3)
  1. DILANTIN KAPSEAL [Suspect]
     Indication: CONVULSION
     Dosage: 400 MG PO HS
     Route: 048
     Dates: start: 20000101
  2. DICLOFENAC SOD [Concomitant]
  3. MIRTAZAPINE [Concomitant]

REACTIONS (1)
  - GRAND MAL CONVULSION [None]
